FAERS Safety Report 4314826-6 (Version None)
Quarter: 2004Q1

REPORT INFORMATION
  Report Type: 
  Country: None (occurrence: None)
  Receive Date: 20040308
  Receipt Date: 20040224
  Transmission Date: 20041129
  Serious: Yes (Other)
  Sender: FDA-Public Use
  Company Number: HQWYE306725FEB04

PATIENT
  Age: 13 Year
  Sex: Female

DRUGS (1)
  1. ADVIL [Suspect]
     Indication: INJURY
     Dosage: ^2 TABLETS^ ORAL
     Route: 048
     Dates: start: 20040217, end: 20040217

REACTIONS (1)
  - ANAPHYLACTIC REACTION [None]
